FAERS Safety Report 8463060-7 (Version None)
Quarter: 2012Q2

REPORT INFORMATION
  Report Type: 
  Country: None (occurrence: None)
  Receive Date: 20120625
  Receipt Date: 20120618
  Transmission Date: 20120825
  Serious: Yes (Other)
  Sender: FDA-Public Use
  Company Number: GB-PFIZER INC-2012145874

PATIENT
  Age: 63 Year
  Sex: Female

DRUGS (9)
  1. LYRICA [Suspect]
     Indication: NEURALGIA
     Dosage: 150 MG, 3X/DAY
     Route: 048
     Dates: start: 20120214, end: 20120607
  2. BENDROFLUMETHIAZIDE [Concomitant]
  3. PROPRANOLOL HCL [Concomitant]
  4. METFORMIN HCL [Concomitant]
  5. PERINDOPRIL ERBUMINE [Concomitant]
  6. SIMVASTATIN [Concomitant]
  7. ZOPICLONE [Concomitant]
  8. DULOXETIME HYDROCHLORIDE [Concomitant]
  9. ACETYLSALICYLIC ACID [Concomitant]

REACTIONS (2)
  - HYPERGLYCAEMIA [None]
  - GLYCOSYLATED HAEMOGLOBIN INCREASED [None]
